FAERS Safety Report 6267878-0 (Version None)
Quarter: 2009Q3

REPORT INFORMATION
  Report Type: 
  Country: None (occurrence: None)
  Receive Date: 20090714
  Receipt Date: 20081111
  Transmission Date: 20100115
  Serious: No
  Sender: FDA-Public Use
  Company Number: BR-AVENTIS-200817069GDDC

PATIENT
  Age: 56 Year
  Sex: Female
  Weight: 61 kg

DRUGS (8)
  1. LANTUS [Suspect]
     Route: 058
     Dates: start: 20050101
  2. OPTIPEN (INSULIN PUMP) [Suspect]
     Route: 058
  3. NOVORAPID [Concomitant]
     Route: 058
     Dates: start: 20050101
  4. SYNTHROID [Concomitant]
     Indication: THYROID DISORDER
     Dosage: DOSE QUANTITY: 1
     Route: 048
     Dates: start: 19720101
  5. VYTORIN [Concomitant]
     Indication: BLOOD CHOLESTEROL
     Dosage: DOSE QUANTITY: 1
     Dates: start: 20060101
  6. LIPANON [Concomitant]
     Dosage: DOSE QUANTITY: 1
     Route: 048
     Dates: start: 20060101
  7. ZYLORIC [Concomitant]
     Dosage: DOSE QUANTITY: 1
     Route: 048
     Dates: start: 20050101
  8. CAPOTEN [Concomitant]
     Indication: RENAL DISORDER
     Dosage: DOSE QUANTITY: 0.5
     Route: 048
     Dates: start: 20060101

REACTIONS (6)
  - BLOOD GLUCOSE INCREASED [None]
  - CONDITION AGGRAVATED [None]
  - GAIT DISTURBANCE [None]
  - NEUROPATHY PERIPHERAL [None]
  - PARAESTHESIA [None]
  - PRODUCT QUALITY ISSUE [None]
